FAERS Safety Report 5109360-X (Version None)
Quarter: 2006Q3

REPORT INFORMATION
  Report Type: 
  Country: None (occurrence: None)
  Receive Date: 20060918
  Receipt Date: 20060906
  Transmission Date: 20061208
  Serious: Yes (Death)
  Sender: FDA-Public Use
  Company Number: PC0000706

PATIENT
  Sex: Female

DRUGS (2)
  1. FLUDEOXYGLUCOSE [Suspect]
     Indication: LUNG NEOPLASM
     Dosage: 10MCI, SINGLE DOSE, 042
  2. FLUDEOXYGLUCOSE [Suspect]
     Indication: POSITRON EMISSION TOMOGRAM
     Dosage: 10MCI, SINGLE DOSE, 042

REACTIONS (3)
  - MYOCARDIAL INFARCTION [None]
  - PROCEDURAL COMPLICATION [None]
  - PULMONARY EMBOLISM [None]
